FAERS Safety Report 6121486-0 (Version None)
Quarter: 2009Q1

REPORT INFORMATION
  Report Type: 
  Country: None (occurrence: None)
  Receive Date: 20090317
  Receipt Date: 20090313
  Transmission Date: 20090719
  Serious: Yes (Death)
  Sender: FDA-Public Use
  Company Number: JP-ASTRAZENECA-2009AP01063

PATIENT
  Age: 80 Year
  Sex: Female
  Weight: 53 kg

DRUGS (16)
  1. IRESSA [Suspect]
     Indication: LUNG ADENOCARCINOMA
     Route: 048
     Dates: start: 20050319, end: 20051129
  2. IRESSA [Suspect]
     Route: 048
     Dates: start: 20070921, end: 20090128
  3. TAKEPRON [Concomitant]
     Indication: GASTRITIS
     Route: 048
     Dates: start: 20060208, end: 20090128
  4. ZOMETA [Concomitant]
     Indication: METASTASES TO BONE
     Route: 042
     Dates: start: 20070925, end: 20090114
  5. ONEALFA [Concomitant]
     Indication: OSTEOPOROSIS
     Route: 048
     Dates: end: 20080923
  6. BONALON [Concomitant]
     Indication: OSTEOPOROSIS
     Route: 048
     Dates: start: 20080924, end: 20090128
  7. NORVASC [Concomitant]
     Indication: HYPERTENSION
     Route: 048
     Dates: end: 20090128
  8. MUCOSOLVAN L [Concomitant]
     Indication: PRODUCTIVE COUGH
     Route: 048
     Dates: end: 20090128
  9. LOXONIN [Concomitant]
     Indication: PAIN
     Route: 048
     Dates: end: 20090128
  10. SELBEX [Concomitant]
     Indication: PROPHYLAXIS AGAINST GASTROINTESTINAL ULCER
     Route: 048
     Dates: end: 20090128
  11. ZYRTEC [Concomitant]
     Indication: RASH
     Route: 048
     Dates: end: 20090128
  12. NIFLAN [Concomitant]
     Indication: CATARACT
     Dosage: ADEQUATE DOSE WAS ADMINISTERED SEVERAL TIMES.
     Route: 047
     Dates: end: 20090128
  13. VOLTAREN [Concomitant]
     Indication: ARTHRITIS
     Dosage: AS REQUIRED.
     Route: 054
     Dates: end: 20090128
  14. DOCETAXEL HYDRATE [Concomitant]
     Dates: start: 20030218, end: 20030508
  15. CARBOPLATIN [Concomitant]
     Dates: start: 20030218, end: 20030508
  16. NAVELBINE [Concomitant]
     Dates: start: 20040227, end: 20040618

REACTIONS (7)
  - CARCINOEMBRYONIC ANTIGEN INCREASED [None]
  - DISSEMINATED INTRAVASCULAR COAGULATION [None]
  - INTERSTITIAL LUNG DISEASE [None]
  - METASTASES TO BONE [None]
  - PNEUMONIA [None]
  - RASH [None]
  - THERAPEUTIC RESPONSE DECREASED [None]
